FAERS Safety Report 9051422 (Version 1)
Quarter: 2013Q1

REPORT INFORMATION
  Report Type: Spontaneous
  Country: US (occurrence: US)
  Receive Date: 20130206
  Receipt Date: 20130206
  Transmission Date: 20140127
  Serious: No
  Sender: FDA-Public Use
  Company Number: US-ALLERGAN-1207875US

PATIENT
  Age: 80 Year
  Sex: Female

DRUGS (4)
  1. RESTASIS [Suspect]
     Indication: DRY EYE
     Dosage: 2 GTT, BID
     Route: 047
     Dates: start: 20120428
  2. SYNTHROID [Concomitant]
     Indication: HYPOTHYROIDISM
  3. ELAVIL                             /00002202/ [Concomitant]
     Indication: NEUROPATHY PERIPHERAL
     Dosage: 10 MG, QHS
  4. MULTIVITAMIN                       /00831701/ [Concomitant]
     Indication: NUTRITIONAL SUPPLEMENTATION
     Dosage: UNK

REACTIONS (1)
  - Haemorrhoidal haemorrhage [Not Recovered/Not Resolved]
